FAERS Safety Report 4312462-9 (Version None)
Quarter: 2004Q1

REPORT INFORMATION
  Report Type: 
  Country: None (occurrence: None)
  Receive Date: 20040305
  Receipt Date: 20040226
  Transmission Date: 20041129
  Serious: Yes (Hospitalization)
  Sender: FDA-Public Use
  Company Number: PHBS2004FR02660

PATIENT
  Age: 70 Year
  Sex: Male

DRUGS (1)
  1. CARTEOLOL HCL [Suspect]

REACTIONS (2)
  - MYCOSIS FUNGOIDES [None]
  - PSEUDO LYMPHOMA [None]
